FAERS Safety Report 5419265-2 (Version None)
Quarter: 2007Q3

REPORT INFORMATION
  Report Type: 
  Country: None (occurrence: None)
  Receive Date: 20070816
  Receipt Date: 20070816
  Transmission Date: 20080115
  Serious: Yes (Other)
  Sender: FDA-Public Use
  Company Number: None

PATIENT

DRUGS (1)
  1. CHANTIX [Suspect]
     Indication: TOBACCO ABUSE
     Dosage: 1 MG BID PO
     Route: 048
     Dates: start: 20070401, end: 20070525

REACTIONS (6)
  - ANAEMIA [None]
  - HEADACHE [None]
  - HYPERTHYROIDISM [None]
  - OEDEMA PERIPHERAL [None]
  - PAIN [None]
  - TACHYCARDIA [None]
